FAERS Safety Report 7047087-8 (Version None)
Quarter: 2010Q4

REPORT INFORMATION
  Report Type: 
  Country: None (occurrence: None)
  Receive Date: 20101015
  Receipt Date: 20101001
  Transmission Date: 20110411
  Serious: Yes (Hospitalization, Disabling)
  Sender: FDA-Public Use
  Company Number: US-CELGENEUS-163-21880-10080209

PATIENT
  Sex: Female

DRUGS (6)
  1. REVLIMID [Suspect]
     Indication: MULTIPLE MYELOMA
     Route: 048
     Dates: start: 20100312
  2. REVLIMID [Suspect]
     Route: 048
     Dates: start: 20100805
  3. AMIODARONE HCL [Concomitant]
     Route: 065
  4. DIGOXIN [Concomitant]
     Route: 065
  5. LASIX [Concomitant]
     Route: 065
  6. WARFARIN SODIUM [Concomitant]
     Route: 065

REACTIONS (3)
  - BACK PAIN [None]
  - DECUBITUS ULCER [None]
  - NAUSEA [None]
